FAERS Safety Report 8459516-3 (Version None)
Quarter: 2012Q2

REPORT INFORMATION
  Report Type: 
  Country: None (occurrence: None)
  Receive Date: 20120622
  Receipt Date: 20120613
  Transmission Date: 20120825
  Serious: Yes (Life-Threatening, Hospitalization)
  Sender: FDA-Public Use
  Company Number: DE-JNJFOC-20120605777

PATIENT
  Age: 30 Year
  Sex: Male

DRUGS (10)
  1. DIAZEPAM [Concomitant]
     Route: 042
     Dates: start: 20120112
  2. CIATYL [Suspect]
     Indication: PRODUCT USED FOR UNKNOWN INDICATION
     Route: 048
     Dates: start: 20120110, end: 20120110
  3. HALDOL [Suspect]
     Indication: PRODUCT USED FOR UNKNOWN INDICATION
     Route: 030
     Dates: start: 20120112
  4. HALDOL [Suspect]
     Route: 030
     Dates: start: 20120112
  5. DIAZEPAM [Concomitant]
     Route: 042
     Dates: start: 20120113
  6. RISPERDAL [Suspect]
     Route: 048
     Dates: start: 20120110, end: 20120110
  7. CIATYL [Suspect]
     Route: 048
     Dates: start: 20120111, end: 20120112
  8. DIAZEPAM [Concomitant]
     Route: 042
     Dates: start: 20120112
  9. RISPERDAL [Suspect]
     Indication: PRODUCT USED FOR UNKNOWN INDICATION
     Route: 048
     Dates: start: 20120117
  10. RISPERDAL [Suspect]
     Route: 048
     Dates: start: 20120111, end: 20120112

REACTIONS (9)
  - CONFUSIONAL STATE [None]
  - TACHYCARDIA [None]
  - BRONCHITIS [None]
  - IRRITABILITY [None]
  - RHABDOMYOLYSIS [None]
  - ABNORMAL BEHAVIOUR [None]
  - BODY TEMPERATURE INCREASED [None]
  - AGGRESSION [None]
  - RESTLESSNESS [None]
